FAERS Safety Report 11363221 (Version 3)
Quarter: 2015Q4

REPORT INFORMATION
  Report Type: Spontaneous
  Country: US (occurrence: US)
  Receive Date: 20150811
  Receipt Date: 20151103
  Transmission Date: 20160304
  Serious: Yes (Hospitalization)
  Sender: FDA-Public Use
  Company Number: US-JNJCP-30000297811

PATIENT
  Sex: Female
  Weight: 54 kg

DRUGS (1)
  1. NEUTROGENA OIL FREE ACNE WASH [Suspect]
     Active Substance: SALICYLIC ACID
     Indication: REMOVAL OF INERT MATTER FROM SKIN OR SUBCUTANEOUS TISSUE
     Dosage: ONCE PUMP TWICE
     Route: 061
     Dates: start: 20150726, end: 20150726

REACTIONS (4)
  - Thermal burn [Not Recovered/Not Resolved]
  - Scratch [None]
  - Burning sensation [None]
  - Inflammation [Not Recovered/Not Resolved]

NARRATIVE: CASE EVENT DATE: 20150727
